FAERS Safety Report 21850874 (Version 1)
Quarter: 2023Q1

REPORT INFORMATION
  Report Type: Report from Study
  Country: PR (occurrence: PR)
  Receive Date: 20230111
  Receipt Date: 20230111
  Transmission Date: 20230418
  Serious: No
  Sender: FDA-Public Use
  Company Number: PR-ABBVIE-4266890

PATIENT
  Sex: Male
  Weight: 107.95 kg

DRUGS (1)
  1. VENCLEXTA [Suspect]
     Active Substance: VENETOCLAX
     Indication: Chronic lymphocytic leukaemia
     Route: 048
     Dates: start: 20220816

REACTIONS (3)
  - White blood cell count decreased [Unknown]
  - Platelet count decreased [Unknown]
  - Red blood cell count decreased [Unknown]
